FAERS Safety Report 19028400 (Version 3)
Quarter: 2021Q2

REPORT INFORMATION
  Report Type: Other
  Country: US (occurrence: US)
  Receive Date: 20210319
  Receipt Date: 20210417
  Transmission Date: 20210717
  Serious: Yes (Hospitalization)
  Sender: FDA-Public Use
  Company Number: US-ROCHE-2793877

PATIENT
  Sex: Female

DRUGS (3)
  1. OCREVUS [Suspect]
     Active Substance: OCRELIZUMAB
     Indication: MULTIPLE SCLEROSIS
     Dosage: YES?DATE OF TREATMENT: 03/AUG/2017, 11/JAN/2018, 24/JUL/2018, 24/JAN/2019, 24/JUL/2019, 24/JAN/2020,
     Route: 065
     Dates: start: 20170711
  2. OCREVUS [Suspect]
     Active Substance: OCRELIZUMAB
     Route: 065
  3. OCREVUS [Suspect]
     Active Substance: OCRELIZUMAB
     Route: 065

REACTIONS (1)
  - Urinary tract infection [Unknown]
